FAERS Safety Report 19228060 (Version 2)
Quarter: 2022Q2

REPORT INFORMATION
  Report Type: Spontaneous
  Country: US (occurrence: None)
  Receive Date: 20210506
  Receipt Date: 20220426
  Transmission Date: 20220721
  Serious: No
  Sender: FDA-Public Use
  Company Number: US-ROCHE-2713723

PATIENT
  Sex: Male

DRUGS (3)
  1. ESBRIET [Suspect]
     Active Substance: PIRFENIDONE
     Indication: Idiopathic pulmonary fibrosis
     Route: 048
     Dates: start: 20200530
  2. ESBRIET [Suspect]
     Active Substance: PIRFENIDONE
     Route: 048
     Dates: start: 20210407, end: 20210826
  3. OFLOXACIN [Concomitant]
     Active Substance: OFLOXACIN

REACTIONS (6)
  - Decreased appetite [Unknown]
  - Chest pain [Unknown]
  - Flatulence [Unknown]
  - Gastrointestinal pain [Unknown]
  - Constipation [Unknown]
  - Abnormal faeces [Unknown]
